FAERS Safety Report 21417881 (Version 1)
Quarter: 2022Q4

REPORT INFORMATION
  Report Type: Spontaneous
  Country: GB (occurrence: GB)
  Receive Date: 20221006
  Receipt Date: 20221006
  Transmission Date: 20230112
  Serious: Yes (Other)
  Sender: FDA-Public Use
  Company Number: GB-002147023-NVSC2022GB123680

PATIENT
  Age: 20 Year
  Sex: Female
  Weight: 82 kg

DRUGS (3)
  1. OMALIZUMAB [Suspect]
     Active Substance: OMALIZUMAB
     Indication: Urticaria
     Route: 065
  2. OMALIZUMAB [Suspect]
     Active Substance: OMALIZUMAB
     Indication: Urticaria chronic
     Dosage: 300 UNK
     Route: 065
     Dates: start: 20201001, end: 20201002
  3. FEXOFENADINE [Concomitant]
     Active Substance: FEXOFENADINE HYDROCHLORIDE
     Indication: Urticaria chronic
     Dosage: 180 MG
     Route: 065

REACTIONS (7)
  - Seizure [Unknown]
  - Dysarthria [Unknown]
  - Mental disorder [Unknown]
  - Migraine [Unknown]
  - Headache [Unknown]
  - Asthma [Unknown]
  - Urticaria [Unknown]
